FAERS Safety Report 6389241-4 (Version None)
Quarter: 2009Q4

REPORT INFORMATION
  Report Type: 
  Country: None (occurrence: None)
  Receive Date: 20091006
  Receipt Date: 20070709
  Transmission Date: 20100525
  Serious: Yes (Other)
  Sender: FDA-Public Use
  Company Number: US-ASTRAZENECA-2006UW22078

PATIENT
  Age: 11679 Day
  Sex: Female
  Weight: 84.4 kg

DRUGS (8)
  1. SEROQUEL [Suspect]
     Indication: ANXIETY
     Route: 048
     Dates: start: 20051017
  2. SEROQUEL [Suspect]
     Indication: DEPRESSION
     Route: 048
     Dates: start: 20051017
  3. SEROQUEL [Suspect]
     Route: 048
     Dates: start: 20051001, end: 20060301
  4. SEROQUEL [Suspect]
     Route: 048
     Dates: start: 20051001, end: 20060301
  5. RISPERDAL [Concomitant]
     Dates: start: 20060901, end: 20061001
  6. THORAZINE [Concomitant]
     Dates: start: 20030101
  7. SINQUANE [Concomitant]
     Dates: start: 20050101
  8. VISTARIL [Concomitant]
     Dates: start: 20060901

REACTIONS (4)
  - BLOOD GLUCOSE INCREASED [None]
  - DIABETES MELLITUS [None]
  - HIV INFECTION [None]
  - HYPERGLYCAEMIA [None]
